FAERS Safety Report 6982541-6 (Version None)
Quarter: 2010Q3

REPORT INFORMATION
  Report Type: 
  Country: None (occurrence: None)
  Receive Date: 20100914
  Receipt Date: 20100420
  Transmission Date: 20110219
  Serious: No
  Sender: FDA-Public Use
  Company Number: US-PFIZER INC-2009306763

PATIENT
  Sex: Female
  Weight: 58 kg

DRUGS (13)
  1. LYRICA [Suspect]
     Indication: PAIN
     Dosage: 75 MG, 4X/DAY
     Route: 048
     Dates: start: 20080407
  2. LYRICA [Suspect]
     Indication: FIBROMYALGIA
  3. VESICARE [Suspect]
     Indication: POLLAKIURIA
     Dosage: UNK
     Route: 048
  4. FLEXERIL [Suspect]
     Indication: PAIN
     Dosage: 10 MG, 2X/DAY
     Route: 048
     Dates: start: 20061029
  5. FLEXERIL [Suspect]
     Dosage: FREQUENCY: 2X/DAY,
     Dates: start: 20061029
  6. NORCO [Concomitant]
     Indication: PAIN
     Dosage: 10 MG, UNK
     Route: 048
  7. ESTRADIOL [Concomitant]
     Dosage: DAILY
     Route: 048
  8. MEDROXYPROGESTERONE [Concomitant]
     Dosage: 2.5 MG, 1X/DAY
     Route: 048
  9. NEXIUM [Concomitant]
     Dosage: 40 MG, AS NEEDED
     Route: 048
  10. MONTELUKAST [Concomitant]
     Indication: DYSPNOEA
     Dosage: 10 MG, 1X/DAY
     Route: 048
  11. CYTOMEL [Concomitant]
     Indication: HYPOTHYROIDISM
     Dosage: UNK
     Route: 048
  12. THYROID TAB [Concomitant]
     Indication: HYPOTHYROIDISM
     Dosage: 60 MG, 1X/DAY
     Route: 048
  13. ESTROGENS [Concomitant]
     Dosage: UNK

REACTIONS (7)
  - ERYTHEMA [None]
  - EYE IRRITATION [None]
  - FEELING ABNORMAL [None]
  - FLUSHING [None]
  - HOT FLUSH [None]
  - URINARY RETENTION [None]
  - WEIGHT INCREASED [None]
